FAERS Safety Report 9203512 (Version 1)
Quarter: 2013Q2

REPORT INFORMATION
  Report Type: Spontaneous
  Country: US (occurrence: US)
  Receive Date: 20130402
  Receipt Date: 20130402
  Transmission Date: 20140414
  Serious: No
  Sender: FDA-Public Use
  Company Number: US-PFIZER INC-2013102430

PATIENT
  Age: 44 Year
  Sex: Female
  Weight: 65.76 kg

DRUGS (8)
  1. XELJANZ [Suspect]
     Dosage: 5 MG, 2X/DAY
     Route: 048
  2. ADVIL [Concomitant]
     Dosage: 200 MG, UNK
  3. FLONASE [Concomitant]
     Dosage: 0.05 %, UNK
  4. SYMBICORT [Concomitant]
     Dosage: 80-4.5
  5. SPIRIVA [Concomitant]
     Dosage: UNK
  6. VENTOLIN [Concomitant]
     Dosage: UNK
  7. VITAMIN B [Concomitant]
     Dosage: 50
  8. B COMPLEX [Concomitant]
     Dosage: UNK

REACTIONS (4)
  - Epistaxis [Unknown]
  - Abdominal pain [Unknown]
  - Flatulence [Unknown]
  - Constipation [Unknown]
